FAERS Safety Report 6991425-9 (Version None)
Quarter: 2010Q3

REPORT INFORMATION
  Report Type: 
  Country: None (occurrence: None)
  Receive Date: 20100916
  Receipt Date: 20090813
  Transmission Date: 20110219
  Serious: No
  Sender: FDA-Public Use
  Company Number: US-WYE-H10601409

PATIENT
  Age: 48 Year
  Sex: Female
  Weight: 90.8 kg

DRUGS (2)
  1. ADVIL PM [Suspect]
     Indication: INSOMNIA
     Dosage: 2 CAPLETS X 1
     Route: 048
     Dates: start: 20090812, end: 20090812
  2. ADVIL PM [Suspect]
     Indication: ARTHRALGIA

REACTIONS (3)
  - DISTURBANCE IN ATTENTION [None]
  - HANGOVER [None]
  - LETHARGY [None]
